FAERS Safety Report 15003822 (Version 1)
Quarter: 2018Q2

REPORT INFORMATION
  Report Type: Spontaneous
  Country: US (occurrence: US)
  Receive Date: 20180613
  Receipt Date: 20180613
  Transmission Date: 20180711
  Serious: No
  Sender: FDA-Public Use
  Company Number: US-ASTRAZENECA-2018SE63880

PATIENT
  Sex: Female

DRUGS (1)
  1. FASLODEX [Suspect]
     Active Substance: FULVESTRANT
     Indication: BREAST CANCER FEMALE
     Dosage: 125 MG DAILY; 3 WEEKS ON/1 WEEK
     Route: 030
     Dates: start: 20180401

REACTIONS (2)
  - Fluid retention [Unknown]
  - Glossodynia [Recovered/Resolved]
